FAERS Safety Report 22301083 (Version 2)
Quarter: 2023Q2

REPORT INFORMATION
  Report Type: Spontaneous
  Country: US (occurrence: US)
  Receive Date: 20230509
  Receipt Date: 20230601
  Transmission Date: 20230722
  Serious: No
  Sender: FDA-Public Use
  Company Number: US-SA-SAC20230503001424

PATIENT
  Age: 57 Year
  Sex: Male
  Weight: 113.39 kg

DRUGS (1)
  1. DUPIXENT [Suspect]
     Active Substance: DUPILUMAB
     Indication: Dermatitis
     Dosage: 300 MG, QOW
     Route: 058
     Dates: start: 202207

REACTIONS (5)
  - Dermatitis [Recovered/Resolved]
  - Rash pruritic [Recovered/Resolved]
  - Burning sensation [Recovered/Resolved]
  - Psoriasis [Recovered/Resolved]
  - Product use in unapproved indication [Unknown]

NARRATIVE: CASE EVENT DATE: 20220701
